FAERS Safety Report 6759510-4 (Version None)
Quarter: 2010Q2

REPORT INFORMATION
  Report Type: 
  Country: None (occurrence: None)
  Receive Date: 20100603
  Receipt Date: 20100521
  Transmission Date: 20101027
  Serious: Yes (Other)
  Sender: FDA-Public Use
  Company Number: 2010SP029602

PATIENT
  Age: 17 Year
  Sex: Female

DRUGS (2)
  1. LORATADINE AND PSEUDOEPHEDRINE SULFATE [Suspect]
     Indication: INFLUENZA
     Dosage: PO
     Route: 048
  2. LORATADINE AND PSEUDOEPHEDRINE SULFATE [Suspect]
     Indication: NASOPHARYNGITIS
     Dosage: PO
     Route: 048

REACTIONS (2)
  - ABDOMINAL DISTENSION [None]
  - DYSPNOEA [None]
